FAERS Safety Report 5871998-X (Version None)
Quarter: 2008Q3

REPORT INFORMATION
  Report Type: 
  Country: None (occurrence: None)
  Receive Date: 20080902
  Receipt Date: 20080820
  Transmission Date: 20090109
  Serious: Yes (Hospitalization)
  Sender: FDA-Public Use
  Company Number: 2008BI021453

PATIENT
  Age: 42 Year
  Sex: Female
  Weight: 90 kg

DRUGS (5)
  1. TYSABRI [Suspect]
     Indication: RELAPSING-REMITTING MULTIPLE SCLEROSIS
     Dosage: 300 MG; QM; IV
     Route: 042
     Dates: start: 20070503, end: 20080502
  2. NEURONTIN [Concomitant]
  3. XANAX [Concomitant]
  4. ZOLOFT [Concomitant]
  5. MODAFINIL [Concomitant]

REACTIONS (3)
  - ANOGENITAL WARTS [None]
  - PAPILLOMA VIRAL INFECTION [None]
  - VAGINAL CANCER STAGE 0 [None]
